FAERS Safety Report 10873209 (Version 1)
Quarter: 2015Q1

REPORT INFORMATION
  Report Type: Spontaneous
  Country: IT (occurrence: IT)
  Receive Date: 20150227
  Receipt Date: 20150227
  Transmission Date: 20150721
  Serious: Yes (Other)
  Sender: FDA-Public Use
  Company Number: IT-TEVA-543881ACC

PATIENT
  Age: 88 Year
  Sex: Female

DRUGS (8)
  1. OMEPRAZOLO SANDOZ [Concomitant]
     Indication: PRODUCT USED FOR UNKNOWN INDICATION
     Dosage: 20 MG
     Route: 042
     Dates: start: 20141031, end: 20141103
  2. POTASSION - GRANULATO EFFERVESCENTE [Concomitant]
     Indication: PRODUCT USED FOR UNKNOWN INDICATION
     Dosage: EFFERVESCENT GRANULES
     Route: 048
     Dates: start: 20141027, end: 20141103
  3. LUVION - 200 MG/2 ML POLVERE E SOLVENTE PER SOLUZIONE INIETTABILE [Concomitant]
     Indication: PRODUCT USED FOR UNKNOWN INDICATION
     Dosage: POWDER AND SOLVENT FOR SOLUTION FOR INJECTION
     Route: 042
     Dates: start: 20141028, end: 20141103
  4. TAVOR - 2 MG/ML GOCCE ORALI, SOLUZIONE [Concomitant]
     Indication: PRODUCT USED FOR UNKNOWN INDICATION
     Dosage: 40 GTT, ORAL DROPS, SOLUTION
     Route: 048
     Dates: start: 20141029, end: 20141031
  5. LEVOPRAID - 25 MG COMPRESSE [Concomitant]
     Indication: PRODUCT USED FOR UNKNOWN INDICATION
     Dosage: 50 MG
     Route: 048
     Dates: start: 20141026, end: 20141029
  6. GLYCERYL TRINITRATE [Concomitant]
     Active Substance: NITROGLYCERIN
     Indication: PRODUCT USED FOR UNKNOWN INDICATION
     Route: 062
     Dates: start: 20141013, end: 20141103
  7. LEVOFLOXACIN. [Suspect]
     Active Substance: LEVOFLOXACIN
     Indication: PNEUMONITIS
     Dosage: 500 MILLIGRAM DAILY; 500 MG DAILY
     Route: 041
     Dates: start: 20141028, end: 20141031
  8. LASIX FIALE - 20MG/2ML SOLUZIONE INIETTABILE [Concomitant]
     Indication: PRODUCT USED FOR UNKNOWN INDICATION
     Dosage: 20 MG
     Dates: start: 20141028, end: 20141103

REACTIONS (1)
  - Delusion [Recovering/Resolving]

NARRATIVE: CASE EVENT DATE: 20141031
